FAERS Safety Report 24690616 (Version 1)
Quarter: 2024Q4

REPORT INFORMATION
  Report Type: Spontaneous
  Country: US (occurrence: US)
  Receive Date: 20241203
  Receipt Date: 20241203
  Transmission Date: 20250114
  Serious: Yes (Other)
  Sender: UCB
  Company Number: US-UCBSA-2024062100

PATIENT
  Age: 60 Year
  Sex: Female

DRUGS (1)
  1. BIMZELX [Suspect]
     Active Substance: BIMEKIZUMAB-BKZX
     Indication: Psoriasis
     Dosage: 320 MILLIGRAM, EV 8 WEEKS
     Route: 058
     Dates: start: 202312

REACTIONS (3)
  - Knee arthroplasty [Unknown]
  - Psoriasis [Unknown]
  - Arthropathy [Unknown]

NARRATIVE: CASE EVENT DATE: 20241001
